FAERS Safety Report 22137781 (Version 1)
Quarter: 2023Q1

REPORT INFORMATION
  Report Type: Spontaneous
  Country: GB (occurrence: GB)
  Receive Date: 20230325
  Receipt Date: 20230325
  Transmission Date: 20230418
  Serious: Yes (Other)
  Sender: FDA-Public Use
  Company Number: None

PATIENT
  Sex: Female

DRUGS (3)
  1. AMITRIPTYLINE [Interacting]
     Active Substance: AMITRIPTYLINE
     Indication: Product used for unknown indication
  2. DOXYCYCLINE HYCLATE [Interacting]
     Active Substance: DOXYCYCLINE HYCLATE
     Indication: Product used for unknown indication
  3. PEPPERMINT OIL [Interacting]
     Active Substance: PEPPERMINT OIL
     Indication: Irritable bowel syndrome

REACTIONS (7)
  - Drug interaction [Unknown]
  - Angina pectoris [Recovering/Resolving]
  - Chest discomfort [Recovering/Resolving]
  - Dyspnoea [Recovering/Resolving]
  - Paraesthesia [Recovering/Resolving]
  - Abdominal discomfort [Recovering/Resolving]
  - Hypoaesthesia [Recovering/Resolving]
